FAERS Safety Report 9834880 (Version 1)
Quarter: 2014Q1

REPORT INFORMATION
  Report Type: Spontaneous
  Country: US (occurrence: US)
  Receive Date: 20140122
  Receipt Date: 20140122
  Transmission Date: 20141002
  Serious: Yes (Other)
  Sender: FDA-Public Use
  Company Number: US-GLAXOSMITHKLINE-A1056755A

PATIENT
  Age: 59 Year
  Sex: Male

DRUGS (9)
  1. CARVEDILOL [Suspect]
     Indication: CARDIAC FAILURE CONGESTIVE
     Dosage: 3.125MG TWICE PER DAY
     Route: 048
     Dates: start: 201012
  2. RADIOACTIVE ISOTOPE [Suspect]
     Indication: CARDIAC STRESS TEST
     Dates: start: 20140109
  3. ASPIRIN [Concomitant]
  4. ISOSORBIDE [Concomitant]
  5. TORSEMIDE [Concomitant]
  6. LOSARTAN [Concomitant]
  7. PLAVIX [Concomitant]
  8. LYSINE [Concomitant]
  9. AMIODARONE [Concomitant]

REACTIONS (12)
  - Atrial fibrillation [Unknown]
  - Blood potassium decreased [Not Recovered/Not Resolved]
  - Scrotal swelling [Not Recovered/Not Resolved]
  - Formication [Unknown]
  - Insomnia [Unknown]
  - Heart rate increased [Recovered/Resolved]
  - Arrhythmia [Recovered/Resolved]
  - Cardiac stress test [Unknown]
  - Genital discomfort [Not Recovered/Not Resolved]
  - Blood pressure increased [Unknown]
  - Drug administration error [Recovered/Resolved]
  - Electrocardiogram abnormal [Recovered/Resolved]
